FAERS Safety Report 14048458 (Version 1)
Quarter: 2017Q4

REPORT INFORMATION
  Report Type: Spontaneous
  Country: US (occurrence: US)
  Receive Date: 20171005
  Receipt Date: 20171005
  Transmission Date: 20180321
  Serious: Yes (Other)
  Sender: FDA-Public Use
  Company Number: US-MYLANLABS-2017M1061958

PATIENT
  Age: 77 Year
  Sex: Female

DRUGS (7)
  1. MIDODRINE [Suspect]
     Active Substance: MIDODRINE
     Indication: PRODUCT USED FOR UNKNOWN INDICATION
     Dosage: UNK
  2. NORTHERA [Suspect]
     Active Substance: DROXIDOPA
     Indication: SYNCOPE
     Dosage: 48 HOUR TITRATION SCHEDULE (100 MG)
     Route: 048
     Dates: start: 20170420
  3. NORTHERA [Suspect]
     Active Substance: DROXIDOPA
     Dosage: 900 MG (300 MG IN A DAY)
     Route: 048
  4. MIDODRINE [Suspect]
     Active Substance: MIDODRINE
     Dosage: 5 MG, QD
  5. NORTHERA [Suspect]
     Active Substance: DROXIDOPA
     Indication: AUTONOMIC NEUROPATHY
     Dosage: UNK
     Route: 048
     Dates: start: 20170418
  6. NORTHERA [Suspect]
     Active Substance: DROXIDOPA
     Dosage: TITRATION  B SCHEDULE (100 MG 3 IN ONE DAY)
     Route: 048
     Dates: start: 20170513
  7. NORTHERA [Suspect]
     Active Substance: DROXIDOPA
     Indication: CIRCULATORY COLLAPSE
     Dosage: SCHEDULE B AND TITRATING (600 MG 3 IN A DAY)
     Route: 048

REACTIONS (9)
  - Headache [Recovering/Resolving]
  - Gait disturbance [Unknown]
  - Fatigue [Unknown]
  - Blood pressure increased [Unknown]
  - Dizziness [Unknown]
  - Sinus headache [Unknown]
  - Blood pressure immeasurable [Not Recovered/Not Resolved]
  - Dysstasia [Unknown]
  - Asthenia [Unknown]
